FAERS Safety Report 22641679 (Version 2)
Quarter: 2024Q4

REPORT INFORMATION
  Report Type: Report from Study
  Country: US (occurrence: US)
  Receive Date: 20230626
  Receipt Date: 20241023
  Transmission Date: 20250115
  Serious: No
  Sender: BAYER HEALTHCARE LLC
  Company Number: US-BAYER-2023A084832

PATIENT
  Age: 62 Year
  Sex: Male

DRUGS (1)
  1. CLARITIN [Suspect]
     Active Substance: LORATADINE

REACTIONS (3)
  - Nasal dryness [None]
  - Headache [None]
  - Malaise [None]
